FAERS Safety Report 8597038-X (Version None)
Quarter: 2012Q3

REPORT INFORMATION
  Report Type: 
  Country: None (occurrence: None)
  Receive Date: 20120816
  Receipt Date: 20120809
  Transmission Date: 20120928
  Serious: Yes (Other)
  Sender: FDA-Public Use
  Company Number: CO-AMGEN-COLSP2012050850

PATIENT
  Age: 36 Year
  Sex: Female

DRUGS (1)
  1. ENBREL [Suspect]
     Indication: OFF LABEL USE
     Dosage: 100 MG, WEEKLY
     Route: 058
     Dates: start: 20100101, end: 20111001

REACTIONS (3)
  - CEREBRAL VENOUS THROMBOSIS [None]
  - IMMUNOSUPPRESSION [None]
  - INFLAMMATORY BOWEL DISEASE [None]
